FAERS Safety Report 23465144 (Version 2)
Quarter: 2024Q1

REPORT INFORMATION
  Report Type: Spontaneous
  Country: FR (occurrence: FR)
  Receive Date: 20240201
  Receipt Date: 20240311
  Transmission Date: 20240409
  Serious: No
  Sender: FDA-Public Use
  Company Number: FR-PFIZER INC-PV202400005188

PATIENT

DRUGS (1)
  1. RETACRIT [Suspect]
     Active Substance: EPOETIN ALFA-EPBX
     Dosage: UNK

REACTIONS (4)
  - Needle issue [Unknown]
  - Device delivery system issue [Unknown]
  - Complication associated with device [Unknown]
  - Device leakage [Unknown]

NARRATIVE: CASE EVENT DATE: 20231227
